FAERS Safety Report 8303983 (Version 3)
Quarter: 2012Q4

REPORT INFORMATION
  Report Type: Report from Study
  Country: US (occurrence: US)
  Receive Date: 20111221
  Receipt Date: 20121119
  Transmission Date: 20130627
  Serious: Yes (Congenital Anomaly, Other)
  Sender: FDA-Public Use
  Company Number: US-UCBSA-8053098

PATIENT
  Sex: Female

DRUGS (4)
  1. KEPPRA [Suspect]
     Indication: EPILEPSY
     Dosage: Dose Freq.: DAILY
     Route: 064
     Dates: end: 20090807
  2. ZERVALX [Concomitant]
     Indication: PREGNANCY
     Route: 064
     Dates: start: 20090109
  3. PRENATAL VITAMINS [Concomitant]
     Indication: PREGNANCY
     Route: 064
     Dates: start: 20081229
  4. CALCIUM SUPPLEMENT [Concomitant]
     Indication: BLOOD CALCIUM
     Route: 064

REACTIONS (12)
  - Foetal growth restriction [Not Recovered/Not Resolved]
  - Small for dates baby [Not Recovered/Not Resolved]
  - Breech presentation [Recovered/Resolved]
  - Neurofibromatosis [Unknown]
  - Developmental delay [Unknown]
  - Congenital skin dimples [Unknown]
  - Skin hyperpigmentation [Unknown]
  - Speech disorder [Unknown]
  - Aversion [Unknown]
  - Blood glucose abnormal [Unknown]
  - Foetal exposure during pregnancy [Recovered/Resolved]
  - Maternal drugs affecting foetus [None]
